FAERS Safety Report 11745424 (Version 1)
Quarter: 2015Q4

REPORT INFORMATION
  Report Type: Spontaneous
  Country: CA (occurrence: CA)
  Receive Date: 20151117
  Receipt Date: 20151117
  Transmission Date: 20160304
  Serious: Yes (Other)
  Sender: FDA-Public Use
  Company Number: CA-ROCHE-1661672

PATIENT
  Sex: Female

DRUGS (6)
  1. ADVAIR HFA [Concomitant]
     Active Substance: FLUTICASONE PROPIONATE\SALMETEROL XINAFOATE
     Route: 065
  2. PREDNISONE. [Concomitant]
     Active Substance: PREDNISONE
  3. VITAMIN C [Concomitant]
     Active Substance: ASCORBIC ACID
  4. XOLAIR [Suspect]
     Active Substance: OMALIZUMAB
     Indication: ASTHMA
     Route: 058
     Dates: start: 20140612
  5. FISH OIL [Concomitant]
     Active Substance: FISH OIL
  6. VENTOLIN [Concomitant]
     Active Substance: ALBUTEROL SULFATE

REACTIONS (7)
  - Chest discomfort [Recovering/Resolving]
  - Forced expiratory volume decreased [Recovering/Resolving]
  - Dyspnoea [Recovering/Resolving]
  - Pyrexia [Recovering/Resolving]
  - Sputum discoloured [Recovering/Resolving]
  - Pneumothorax [Recovering/Resolving]
  - Malaise [Recovering/Resolving]
